FAERS Safety Report 9022189 (Version 4)
Quarter: 2013Q4

REPORT INFORMATION
  Report Type: Spontaneous
  Country: US (occurrence: US)
  Receive Date: 20130118
  Receipt Date: 20131107
  Transmission Date: 20140711
  Serious: Yes (Hospitalization, Other)
  Sender: FDA-Public Use
  Company Number: US-009507513-1301USA008173

PATIENT
  Age: 49 Year
  Sex: Female

DRUGS (2)
  1. PEGINTRON [Suspect]
     Indication: HEPATITIS C
     Dosage: REDIPEN
     Dates: start: 20121102, end: 20131031
  2. REBETOL [Suspect]
     Indication: HEPATITIS C
     Dosage: UNK
     Route: 048
     Dates: start: 20121102, end: 20131031

REACTIONS (10)
  - Blood disorder [Unknown]
  - Transfusion [Unknown]
  - Hypotension [Unknown]
  - Hospitalisation [Recovered/Resolved]
  - Weight decreased [Unknown]
  - Stress [Unknown]
  - Haematocrit decreased [Unknown]
  - White blood cell count decreased [Unknown]
  - Haemoglobin decreased [Unknown]
  - Drug dose omission [Unknown]
